FAERS Safety Report 8357135-0 (Version None)
Quarter: 2012Q2

REPORT INFORMATION
  Report Type: 
  Country: None (occurrence: None)
  Receive Date: 20120514
  Receipt Date: 20120507
  Transmission Date: 20120825
  Serious: Yes (Other)
  Sender: FDA-Public Use
  Company Number: US-BAYER-2011-020148

PATIENT
  Age: 20 Year
  Sex: Female
  Weight: 165.8 kg

DRUGS (1)
  1. YAZ [Suspect]
     Indication: PREMENSTRUAL SYNDROME
     Dosage: UNK
     Dates: start: 20090101

REACTIONS (5)
  - INJURY [None]
  - DEPRESSION [None]
  - THROMBOSIS [None]
  - MENORRHAGIA [None]
  - PAIN [None]
